FAERS Safety Report 4317394-8 (Version None)
Quarter: 2004Q1

REPORT INFORMATION
  Report Type: 
  Country: None (occurrence: None)
  Receive Date: 20040312
  Receipt Date: 20040224
  Transmission Date: 20041129
  Serious: Yes (Hospitalization)
  Sender: FDA-Public Use
  Company Number: DPC-2004-00028 (0)

PATIENT
  Sex: Female

DRUGS (2)
  1. EVOXAC [Suspect]
     Indication: SJOGREN'S SYNDROME
     Dosage: ORAL
     Route: 048
  2. NAPROXEN [Concomitant]

REACTIONS (7)
  - ASTHENIA [None]
  - DEHYDRATION [None]
  - HEADACHE [None]
  - NAUSEA [None]
  - ORTHOSTATIC HYPOTENSION [None]
  - TRANSIENT ISCHAEMIC ATTACK [None]
  - VOMITING [None]
